FAERS Safety Report 10994091 (Version 1)
Quarter: 2015Q2

REPORT INFORMATION
  Report Type: Spontaneous
  Country: BR (occurrence: BR)
  Receive Date: 20150407
  Receipt Date: 20150407
  Transmission Date: 20150821
  Serious: Yes (Hospitalization)
  Sender: FDA-Public Use
  Company Number: BR-PFIZER INC-2013361936

PATIENT
  Age: 59 Year
  Sex: Male
  Weight: 79 kg

DRUGS (4)
  1. OMEPRAZOLE. [Concomitant]
     Active Substance: OMEPRAZOLE
     Dosage: UNK
  2. SUTENT [Suspect]
     Active Substance: SUNITINIB MALATE
     Indication: RENAL CELL CARCINOMA
     Dosage: 50 MG (ONE CAPSULE), DAILY, CYCLIC (4 PER 2, 1 TABLET BY 28 DAYS AND 14 DAYS OF RESTING)
     Route: 048
     Dates: start: 20130905, end: 201411
  3. SUTENT [Suspect]
     Active Substance: SUNITINIB MALATE
     Dosage: UNK
     Route: 048
     Dates: start: 20141130, end: 20141221
  4. PARACETAMOL [Concomitant]
     Active Substance: ACETAMINOPHEN
     Indication: HEADACHE
     Dosage: UNK

REACTIONS (20)
  - Face oedema [Not Recovered/Not Resolved]
  - Blister [Recovered/Resolved]
  - Sleep disorder [Recovered/Resolved]
  - Diarrhoea [Recovered/Resolved]
  - Gingival bleeding [Recovered/Resolved]
  - Thyroid disorder [Not Recovered/Not Resolved]
  - Throat tightness [Recovered/Resolved]
  - Dyspnoea [Recovered/Resolved]
  - Saliva altered [Recovered/Resolved]
  - Gingival pain [Recovered/Resolved]
  - Productive cough [Recovered/Resolved]
  - Secretion discharge [Recovering/Resolving]
  - Tongue eruption [Recovered/Resolved]
  - Dry skin [Recovered/Resolved]
  - Tooth loss [Not Recovered/Not Resolved]
  - Mouth haemorrhage [Recovered/Resolved]
  - Dysphagia [Not Recovered/Not Resolved]
  - Headache [Recovered/Resolved]
  - Fluid retention [Recovered/Resolved]
  - Oedema peripheral [Not Recovered/Not Resolved]

NARRATIVE: CASE EVENT DATE: 2013
